FAERS Safety Report 6380014-5 (Version None)
Quarter: 2009Q3

REPORT INFORMATION
  Report Type: 
  Country: None (occurrence: None)
  Receive Date: 20090928
  Receipt Date: 20090916
  Transmission Date: 20100115
  Serious: Yes (Hospitalization)
  Sender: FDA-Public Use
  Company Number: JP-ABBOTT-08P-087-0459974-00

PATIENT
  Age: 67 Year
  Sex: Male

DRUGS (11)
  1. LEUPROLIDE ACETATE [Suspect]
     Indication: PROSTATE CANCER STAGE IV
     Route: 058
     Dates: start: 20070323
  2. CASODEX [Concomitant]
     Indication: PROSTATE CANCER STAGE IV
     Route: 048
  3. FLOMOX [Concomitant]
     Indication: INFLAMMATION
     Route: 048
     Dates: start: 20070417, end: 20070427
  4. FROBEN [Concomitant]
     Indication: INFLAMMATION
     Route: 048
     Dates: start: 20070417, end: 20070427
  5. NIZORAL [Concomitant]
     Indication: ONYCHOMYCOSIS
     Route: 062
     Dates: start: 20080214
  6. LORCAM [Concomitant]
     Indication: PERIARTHRITIS
     Route: 048
     Dates: start: 20080929, end: 20081023
  7. VOLTAREN [Concomitant]
     Indication: PERIARTHRITIS
     Route: 048
     Dates: start: 20081024, end: 20081113
  8. GAMOFA [Concomitant]
     Indication: PROPHYLAXIS AGAINST GASTROINTESTINAL ULCER
     Route: 048
     Dates: start: 20080929, end: 20081113
  9. MUCOSTA [Concomitant]
     Indication: PROPHYLAXIS AGAINST GASTROINTESTINAL ULCER
     Route: 048
     Dates: start: 20080929, end: 20081023
  10. MUCOSTA [Concomitant]
     Route: 048
     Dates: start: 20081024, end: 20081113
  11. ITRIZOLE [Concomitant]
     Indication: ONYCHOMYCOSIS
     Route: 048
     Dates: start: 20080220, end: 20080422

REACTIONS (3)
  - COUGH [None]
  - EPIGLOTTITIS [None]
  - PHARYNGITIS [None]
